FAERS Safety Report 11480565 (Version 1)
Quarter: 2015Q3

REPORT INFORMATION
  Report Type: Spontaneous
  Country: ZA (occurrence: ZA)
  Receive Date: 20150909
  Receipt Date: 20150909
  Transmission Date: 20151125
  Serious: Yes (Other)
  Sender: FDA-Public Use
  Company Number: ZA-BAYER-2015-412101

PATIENT

DRUGS (20)
  1. NEXAVAR [Suspect]
     Active Substance: SORAFENIB
     Indication: HEPATIC CANCER
     Route: 048
  2. PRIMULA SPP. FLOWER [Concomitant]
  3. SINUPRET [Concomitant]
     Active Substance: HERBALS
  4. PYRIDOXINE HYDROCHLORIDE. [Concomitant]
     Active Substance: PYRIDOXINE HYDROCHLORIDE
  5. DEXPANTHENOL. [Concomitant]
     Active Substance: DEXPANTHENOL
  6. BEROCCA [VITAMINS NOS] [Concomitant]
  7. SAMBUCUS NIGRA FLOWER [Concomitant]
  8. ZOCOR [Concomitant]
     Active Substance: SIMVASTATIN
  9. CYANOCOBALAMIN. [Concomitant]
     Active Substance: CYANOCOBALAMIN
  10. THIAMINE HYDROCHLORIDE. [Concomitant]
     Active Substance: THIAMINE HYDROCHLORIDE
  11. GLUCOPHAGE [Concomitant]
     Active Substance: METFORMIN HYDROCHLORIDE
  12. ESSENTIALE [VITAMINS NOS] [Concomitant]
  13. GENTIANA LUTEA ROOT [Concomitant]
     Active Substance: GENTIANA LUTEA ROOT
  14. ADALAT [Concomitant]
     Active Substance: NIFEDIPINE
  15. RUMEX ACETOSA [Concomitant]
  16. NICOTINAMIDE [Concomitant]
     Active Substance: NIACINAMIDE
  17. CINNAMON. [Concomitant]
     Active Substance: CINNAMON
  18. NICOTINAMIDE [Concomitant]
     Active Substance: NIACINAMIDE
  19. RIBOFLAVIN [Concomitant]
     Active Substance: RIBOFLAVIN
  20. ALTOSEC [Concomitant]
     Active Substance: OMEPRAZOLE

REACTIONS (2)
  - Drug ineffective [Unknown]
  - Hepatocellular carcinoma [Unknown]
